FAERS Safety Report 15567543 (Version 1)
Quarter: 2018Q4

REPORT INFORMATION
  Report Type: Spontaneous
  Country: FR (occurrence: FR)
  Receive Date: 20181030
  Receipt Date: 20181030
  Transmission Date: 20190205
  Serious: Yes (Life-Threatening)
  Sender: FDA-Public Use
  Company Number: FR-TEVA-2018-FR-969336

PATIENT
  Age: 82 Year
  Sex: Female
  Weight: 80 kg

DRUGS (6)
  1. AMIODARONE [Concomitant]
     Active Substance: AMIODARONE
  2. FUROSEMIDE. [Suspect]
     Active Substance: FUROSEMIDE
     Indication: VENTRICULAR DYSFUNCTION
     Dosage: 40 MILLIGRAM DAILY;
     Route: 048
     Dates: end: 20180923
  3. BISOPROLOL (HEMIFUMARATE DE) [Suspect]
     Active Substance: BISOPROLOL FUMARATE
     Indication: VENTRICULAR DYSFUNCTION
     Dosage: 1.25 MILLIGRAM DAILY;
     Route: 048
     Dates: end: 20180923
  4. LEVOTHYROXINE SODIQUE [Concomitant]
     Active Substance: LEVOTHYROXINE SODIUM
  5. IBUFETUM 5 %, GEL [Suspect]
     Active Substance: IBUPROFEN
     Indication: PAIN
     Dosage: 2 DOSAGE FORMS DAILY;
     Route: 003
     Dates: end: 20180923
  6. PREVISCAN 20 MG, COMPRIM? S?CABLE [Suspect]
     Active Substance: FLUINDIONE
     Indication: ATRIAL FIBRILLATION
     Dosage: .5 DOSAGE FORMS DAILY;
     Route: 048
     Dates: end: 20180923

REACTIONS (3)
  - Breast haematoma [Recovered/Resolved with Sequelae]
  - Shock haemorrhagic [Recovering/Resolving]
  - Anaemia [Recovering/Resolving]

NARRATIVE: CASE EVENT DATE: 20180923
